FAERS Safety Report 18522759 (Version 1)
Quarter: 2020Q4

REPORT INFORMATION
  Report Type: Spontaneous
  Country: PL (occurrence: PL)
  Receive Date: 20201119
  Receipt Date: 20201119
  Transmission Date: 20210114
  Serious: Yes (Hospitalization, Other)
  Sender: FDA-Public Use
  Company Number: PL-TEVA-2020-PL-1849516

PATIENT
  Age: 65 Year
  Sex: Male

DRUGS (2)
  1. ACITRETIN. [Suspect]
     Active Substance: ACITRETIN
     Dosage: 50 MILLIGRAM DAILY;
     Route: 065
     Dates: start: 201311, end: 201404
  2. METHOTREXATE. [Suspect]
     Active Substance: METHOTREXATE
     Dosage: 15 MG PER WEEK
     Route: 065
     Dates: start: 201311, end: 201404

REACTIONS (3)
  - Drug ineffective [Unknown]
  - Adenocarcinoma [Unknown]
  - Disease progression [Unknown]
